FAERS Safety Report 9203814 (Version 4)
Quarter: 2013Q2

REPORT INFORMATION
  Report Type: Spontaneous
  Country: US (occurrence: US)
  Receive Date: 20130402
  Receipt Date: 20130617
  Transmission Date: 20140414
  Serious: Yes (Other)
  Sender: FDA-Public Use
  Company Number: US-PFIZER INC-2013101973

PATIENT
  Age: 73 Year
  Sex: Male
  Weight: 86.17 kg

DRUGS (6)
  1. CELEBREX [Suspect]
     Indication: ARTHRITIS
     Dosage: 200 MG, 1X/DAY
     Route: 048
  2. ACETYLSALICYLIC ACID [Concomitant]
     Indication: PROPHYLAXIS
     Dosage: UNK,1X/DAY
  3. RANITIDINE [Concomitant]
     Indication: GASTRIC DISORDER
     Dosage: 300 MG, 1X/DAY
  4. NEXIUM [Concomitant]
     Indication: GASTRIC DISORDER
     Dosage: 40 MG, 1X/DAY
  5. FLEXERIL [Concomitant]
     Indication: SLEEP DISORDER
     Dosage: 10 MG, UNK
  6. CRESTOR [Concomitant]
     Indication: BLOOD CHOLESTEROL INCREASED
     Dosage: 5 MG, 1X/DAY

REACTIONS (4)
  - Lower limb fracture [Unknown]
  - Fall [Recovered/Resolved]
  - Headache [Not Recovered/Not Resolved]
  - Visual impairment [Not Recovered/Not Resolved]
